FAERS Safety Report 15349291 (Version 3)
Quarter: 2020Q3

REPORT INFORMATION
  Report Type: Report from Study
  Country: IL (occurrence: IL)
  Receive Date: 20180904
  Receipt Date: 20190108
  Transmission Date: 20201104
  Serious: Yes (Hospitalization)
  Sender: FDA-Public Use
  Company Number: IL-JNJFOC-20180836906

PATIENT
  Age: 80 Year
  Sex: Male
  Weight: 78 kg

DRUGS (17)
  1. IBRUTINIB [Suspect]
     Active Substance: IBRUTINIB
     Indication: CHRONIC LYMPHOCYTIC LEUKAEMIA
     Route: 048
     Dates: start: 20180709
  2. VENETOCLAX. [Suspect]
     Active Substance: VENETOCLAX
     Indication: CHRONIC LYMPHOCYTIC LEUKAEMIA
     Route: 048
     Dates: start: 20180709
  3. SYSTANE (POLYETHYLENE GLYCOL 400\PROPYLENE GLYCOL) [Concomitant]
     Active Substance: POLYETHYLENE GLYCOL 400\PROPYLENE GLYCOL
     Route: 047
     Dates: start: 2011
  4. TOPISALEN [Concomitant]
     Route: 061
     Dates: start: 20150601
  5. NASOCORT [Concomitant]
     Active Substance: BUDESONIDE
     Route: 045
  6. LEVITRA [Concomitant]
     Active Substance: VARDENAFIL HYDROCHLORIDE
     Route: 048
     Dates: start: 2000
  7. EXFORGE [Concomitant]
     Active Substance: AMLODIPINE BESYLATE\VALSARTAN
     Dosage: 10/160 MG
     Route: 048
     Dates: start: 2006
  8. CADEX [Concomitant]
     Route: 048
     Dates: start: 2009
  9. CONTROLOC [Concomitant]
     Active Substance: PANTOPRAZOLE SODIUM
     Route: 048
  10. SIMVASTATIN. [Concomitant]
     Active Substance: SIMVASTATIN
     Route: 048
  11. VITAMIN D3 [Concomitant]
     Active Substance: CHOLECALCIFEROL
     Route: 048
     Dates: start: 20180601
  12. ORACORT E [Concomitant]
     Route: 061
     Dates: start: 20180401
  13. CALCIUM [Concomitant]
     Active Substance: CALCIUM
     Route: 048
     Dates: start: 20180610
  14. PITRION [Concomitant]
     Route: 061
     Dates: start: 20180514
  15. IBRUTINIB [Suspect]
     Active Substance: IBRUTINIB
     Route: 048
  16. VALSARTAN. [Concomitant]
     Active Substance: VALSARTAN
     Route: 048
     Dates: start: 2017
  17. CLOPIDOGREL [Concomitant]
     Active Substance: CLOPIDOGREL BISULFATE
     Route: 048
     Dates: start: 2009

REACTIONS (1)
  - Pulmonary congestion [Recovered/Resolved]

NARRATIVE: CASE EVENT DATE: 20180823
